FAERS Safety Report 5279334-7 (Version None)
Quarter: 2007Q1

REPORT INFORMATION
  Report Type: 
  Country: None (occurrence: None)
  Receive Date: 20070328
  Receipt Date: 20060320
  Transmission Date: 20070707
  Serious: No
  Sender: FDA-Public Use
  Company Number: US-AMGEN-US167559

PATIENT
  Sex: Male
  Weight: 68.1 kg

DRUGS (14)
  1. NEULASTA [Suspect]
     Indication: CHEMOTHERAPY
     Route: 058
     Dates: start: 20051212
  2. OXYIR [Concomitant]
     Route: 065
     Dates: start: 20060109, end: 20060201
  3. OXYCONTIN [Concomitant]
     Route: 065
     Dates: start: 20060109, end: 20060201
  4. ETOPOSIDE [Concomitant]
     Route: 065
     Dates: start: 20060110, end: 20060112
  5. PLATINOL [Concomitant]
     Route: 065
     Dates: start: 20060110, end: 20060112
  6. ADRIAMYCIN PFS [Concomitant]
     Route: 065
     Dates: start: 20060109, end: 20060109
  7. DULCOLAX [Concomitant]
     Route: 065
     Dates: start: 20060112, end: 20060227
  8. PRILOSEC [Concomitant]
     Route: 065
     Dates: start: 20060109, end: 20060227
  9. ALLOPURINOL [Concomitant]
     Route: 065
     Dates: start: 20060111, end: 20060118
  10. OXYIR [Concomitant]
     Route: 065
     Dates: start: 20060109, end: 20060201
  11. DILAUDID [Concomitant]
     Route: 065
     Dates: start: 20060206, end: 20060222
  12. ZOFRAN [Concomitant]
     Route: 065
     Dates: start: 20060109, end: 20060222
  13. REGLAN [Concomitant]
     Route: 065
     Dates: start: 20060109, end: 20060227
  14. LYSODREN [Concomitant]
     Route: 065
     Dates: start: 20051209, end: 20060227

REACTIONS (5)
  - ABDOMINAL PAIN [None]
  - ADRENOCORTICAL CARCINOMA [None]
  - DISEASE PROGRESSION [None]
  - MUSCULOSKELETAL PAIN [None]
  - NAUSEA [None]
